FAERS Safety Report 7002323-9 (Version None)
Quarter: 2010Q3

REPORT INFORMATION
  Report Type: 
  Country: None (occurrence: None)
  Receive Date: 20100920
  Receipt Date: 20090908
  Transmission Date: 20110219
  Serious: Yes (Other)
  Sender: FDA-Public Use
  Company Number: US-ASTRAZENECA-2009UW13315

PATIENT
  Age: 23438 Day
  Sex: Male
  Weight: 111.1 kg

DRUGS (4)
  1. SEROQUEL [Suspect]
     Indication: DEPRESSION
     Route: 048
  2. PAXIL [Concomitant]
     Indication: DEPRESSION
     Dates: start: 20020121
  3. CELEXA [Concomitant]
     Indication: DEPRESSION
     Dates: start: 20061227
  4. SINEMET [Concomitant]
     Indication: TARDIVE DYSKINESIA
     Dates: start: 20061011

REACTIONS (5)
  - BLOOD CHOLESTEROL INCREASED [None]
  - HYPERLIPIDAEMIA [None]
  - OBESITY [None]
  - TARDIVE DYSKINESIA [None]
  - TYPE 2 DIABETES MELLITUS [None]
